FAERS Safety Report 15843924 (Version 2)
Quarter: 2019Q1

REPORT INFORMATION
  Report Type: Spontaneous
  Country: IT (occurrence: IT)
  Receive Date: 20190118
  Receipt Date: 20190122
  Transmission Date: 20190417
  Serious: Yes (Hospitalization)
  Sender: FDA-Public Use
  Company Number: IT-JNJFOC-20190122701

PATIENT
  Age: 73 Year
  Sex: Male

DRUGS (1)
  1. XARELTO [Suspect]
     Active Substance: RIVAROXABAN
     Indication: ATRIAL FIBRILLATION
     Route: 048
     Dates: start: 20180105, end: 20181231

REACTIONS (2)
  - Drug ineffective [Recovered/Resolved]
  - Venous thrombosis limb [Recovered/Resolved]

NARRATIVE: CASE EVENT DATE: 20181216
